FAERS Safety Report 9832821 (Version 2)
Quarter: 2014Q1

REPORT INFORMATION
  Report Type: Spontaneous
  Country: FR (occurrence: FR)
  Receive Date: 20140121
  Receipt Date: 20140206
  Transmission Date: 20141002
  Serious: Yes (Hospitalization)
  Sender: FDA-Public Use
  Company Number: FR-GLAXOSMITHKLINE-B0961744A

PATIENT
  Age: 45 Year
  Sex: Female

DRUGS (4)
  1. SORIATANE [Suspect]
     Indication: PSORIASIS
     Route: 048
     Dates: end: 201111
  2. DROSPIRENONE + ETHINYLESTRADIOL [Suspect]
     Indication: ORAL CONTRACEPTION
     Route: 048
     Dates: end: 20111217
  3. ZELITREX [Concomitant]
     Dosage: 1TAB PER DAY
     Route: 065
  4. DROSPIRENONE + ETHINYLESTRADIOL [Concomitant]
     Route: 065

REACTIONS (1)
  - Cerebral venous thrombosis [Recovered/Resolved]
